FAERS Safety Report 19442278 (Version 1)
Quarter: 2021Q2

REPORT INFORMATION
  Report Type: Other
  Country: US (occurrence: US)
  Receive Date: 20210621
  Receipt Date: 20210621
  Transmission Date: 20210717
  Serious: No
  Sender: FDA-Public Use
  Company Number: US-ACORDA-ACO_168513_2021

PATIENT
  Sex: Male

DRUGS (2)
  1. INBRIJA [Suspect]
     Active Substance: LEVODOPA
     Indication: PARKINSON^S DISEASE
     Dosage: 2 DOSAGE FORM PRN, 84 MG UP TO 5 TIMES A DAY; NOT TO EXCEED 5 DOSES IN 1 DAY
     Dates: start: 20210106
  2. INBRIJA [Suspect]
     Active Substance: LEVODOPA
     Indication: ON AND OFF PHENOMENON

REACTIONS (4)
  - Therapy cessation [Unknown]
  - Condition aggravated [Unknown]
  - Tremor [Unknown]
  - Parkinson^s disease [Unknown]
